FAERS Safety Report 7401898-5 (Version None)
Quarter: 2011Q1

REPORT INFORMATION
  Report Type: 
  Country: None (occurrence: None)
  Receive Date: 20110301
  Receipt Date: 20100927
  Transmission Date: 20110831
  Serious: No
  Sender: FDA-Public Use
  Company Number: ALA_01539_2011

PATIENT
  Sex: Female

DRUGS (2)
  1. REGLAN [Suspect]
     Indication: PRODUCT USED FOR UNKNOWN INDICATION
     Dosage: (5 MG ORAL), (10 MG ORAL)
     Route: 048
     Dates: start: 20050901, end: 20090901
  2. REGLAN [Suspect]
     Indication: PRODUCT USED FOR UNKNOWN INDICATION
     Dosage: (5 MG ORAL), (10 MG ORAL)
     Route: 048
     Dates: start: 20050901, end: 20090901

REACTIONS (1)
  - TREMOR [None]
